FAERS Safety Report 20540472 (Version 1)
Quarter: 2022Q1

REPORT INFORMATION
  Report Type: Spontaneous
  Country: BE (occurrence: BE)
  Receive Date: 20220302
  Receipt Date: 20220302
  Transmission Date: 20220424
  Serious: Yes (Other)
  Sender: FDA-Public Use
  Company Number: BE-BAYER-2021A248198

PATIENT
  Age: 40 Year
  Sex: Female

DRUGS (1)
  1. RIVAROXABAN [Suspect]
     Active Substance: RIVAROXABAN
     Indication: Deep vein thrombosis
     Dosage: UNK
     Route: 048

REACTIONS (3)
  - Cervix carcinoma [Unknown]
  - Vaginal haemorrhage [Unknown]
  - Deep vein thrombosis [Unknown]
